FAERS Safety Report 17649117 (Version 1)
Quarter: 2020Q2

REPORT INFORMATION
  Report Type: Spontaneous
  Country: US (occurrence: US)
  Receive Date: 20200408
  Receipt Date: 20200408
  Transmission Date: 20200713
  Serious: Yes (Other)
  Sender: FDA-Public Use
  Company Number: US-PFIZER INC-2020037824

PATIENT
  Age: 72 Year
  Sex: Female
  Weight: 42.64 kg

DRUGS (1)
  1. THERMACARE ULTRA [Suspect]
     Active Substance: CAMPHOR (SYNTHETIC)\CAPSICUM OLEORESIN\MENTHOL\METHYL SALICYLATE
     Indication: PAIN IN EXTREMITY
     Dosage: UNK, SINGLE (APPLIED TO BOTH LEGS)
     Route: 061
     Dates: start: 20200123, end: 20200123

REACTIONS (2)
  - Thermal burn [Recovered/Resolved]
  - Urticaria [Recovered/Resolved]

NARRATIVE: CASE EVENT DATE: 20200123
